FAERS Safety Report 8790261 (Version 1)
Quarter: 2012Q4

REPORT INFORMATION
  Report Type: Report from Study
  Country: CA (occurrence: CA)
  Receive Date: 20120917
  Receipt Date: 20120917
  Transmission Date: 20130627
  Serious: Yes (Other)
  Sender: FDA-Public Use
  Company Number: CA-JNJFOC-20120903787

PATIENT
  Age: 43 None
  Sex: Female
  Weight: 89.3 kg

DRUGS (4)
  1. REMICADE [Suspect]
     Indication: COLITIS
     Route: 042
     Dates: start: 20120617
  2. REMICADE [Suspect]
     Indication: COLITIS
     Route: 042
     Dates: start: 20120608
  3. PROPAFENONE [Concomitant]
     Route: 065
  4. METOPROLOL [Concomitant]
     Route: 065

REACTIONS (7)
  - Atrial fibrillation [Recovered/Resolved]
  - Colitis [Recovered/Resolved]
  - Constipation [Recovered/Resolved]
  - Arthritis [Recovered/Resolved]
  - Photopsia [Recovered/Resolved]
  - Headache [Recovered/Resolved]
  - Nausea [Recovered/Resolved]
